FAERS Safety Report 8399337-3 (Version None)
Quarter: 2012Q1

REPORT INFORMATION
  Report Type: 
  Country: None (occurrence: None)
  Receive Date: 20120323
  Receipt Date: 20111007
  Transmission Date: 20120608
  Serious: Yes (Hospitalization)
  Sender: FDA-Public Use
  Company Number: 163-21880-11020723

PATIENT
  Age: 54 Year
  Sex: Male

DRUGS (9)
  1. CISPLATIN [Concomitant]
  2. DOXORUBICIN HCL [Concomitant]
  3. REVLIMID [Suspect]
     Indication: MULTIPLE MYELOMA
     Dosage: 10 MG, 1 IN 1 D, PO 25 MG, 1 IN 1 D, PO
     Route: 048
     Dates: start: 20110201, end: 20110510
  4. REVLIMID [Suspect]
     Indication: MULTIPLE MYELOMA
     Dosage: 10 MG, 1 IN 1 D, PO 25 MG, 1 IN 1 D, PO
     Route: 048
     Dates: start: 20101202, end: 20110201
  5. ETOPOSIDE [Concomitant]
  6. THALOMID [Suspect]
     Indication: MULTIPLE MYELOMA
     Dosage: 400 MG, 2 IN 1 D, PO
     Route: 048
     Dates: start: 20110501, end: 20110101
  7. DEXAMETHASONE [Concomitant]
  8. CYCLOPHOSPHAMIDE [Concomitant]
  9. VINCRISTINE [Concomitant]

REACTIONS (2)
  - LABORATORY TEST ABNORMAL [None]
  - MULTIPLE MYELOMA [None]
